FAERS Safety Report 5814521-8 (Version None)
Quarter: 2008Q3

REPORT INFORMATION
  Report Type: 
  Country: None (occurrence: None)
  Receive Date: 20080718
  Receipt Date: 20070602
  Transmission Date: 20090109
  Serious: No
  Sender: FDA-Public Use
  Company Number: US-KINGPHARMUSA00001-K200700696

PATIENT

DRUGS (5)
  1. LEVOXYL [Suspect]
     Dosage: 112 MCG, QD
     Route: 048
     Dates: start: 20060101
  2. LEVOXYL [Suspect]
     Dosage: 112 MCG, QD
     Route: 048
     Dates: start: 20070101
  3. ASPIRIN [Concomitant]
  4. FLUOXETINE [Concomitant]
  5. LEVOTHYROXINE SODIUM [Concomitant]
     Route: 048
     Dates: end: 20070101

REACTIONS (2)
  - OESOPHAGEAL DISCOMFORT [None]
  - OROPHARYNGEAL PAIN [None]
